FAERS Safety Report 4976101-6 (Version None)
Quarter: 2006Q2

REPORT INFORMATION
  Report Type: 
  Country: None (occurrence: None)
  Receive Date: 20060411
  Receipt Date: 20060324
  Transmission Date: 20061013
  Serious: Yes (Other)
  Sender: FDA-Public Use
  Company Number: US200603006411

PATIENT
  Sex: Female

DRUGS (7)
  1. EVISTA [Suspect]
     Indication: OSTEOARTHRITIS
     Dosage: ORAL
     Route: 048
     Dates: start: 20020101, end: 20060301
  2. SOMA [Concomitant]
  3. VALIUM /NET/ (DIAZEPAM) [Concomitant]
  4. XANAX  /USA/ (ALPRAZOLAM) [Concomitant]
  5. ALLEGRA [Concomitant]
  6. CLARTIN /USA/ (LORATADINE) [Concomitant]
  7. VAGIFEM [Concomitant]

REACTIONS (5)
  - CEREBRAL HAEMORRHAGE [None]
  - INSOMNIA [None]
  - OSTEOPOROSIS [None]
  - PLATELET COUNT DECREASED [None]
  - URINE CALCIUM [None]
